FAERS Safety Report 7127568-9 (Version None)
Quarter: 2010Q4

REPORT INFORMATION
  Report Type: 
  Country: None (occurrence: None)
  Receive Date: 20101129
  Receipt Date: 20100622
  Transmission Date: 20110411
  Serious: Yes (Other)
  Sender: FDA-Public Use
  Company Number: US-PFIZER INC-2010078265

PATIENT
  Sex: Male

DRUGS (1)
  1. VIAGRA [Suspect]
     Dosage: UNK MG, AS NEEDED
     Route: 048
     Dates: start: 20100622

REACTIONS (4)
  - ERECTION INCREASED [None]
  - INTENTIONAL DRUG MISUSE [None]
  - PENILE PAIN [None]
  - PENILE SWELLING [None]
